FAERS Safety Report 25771523 (Version 1)
Quarter: 2025Q3

REPORT INFORMATION
  Report Type: Spontaneous
  Country: US (occurrence: US)
  Receive Date: 20250908
  Receipt Date: 20250908
  Transmission Date: 20251020
  Serious: No
  Sender: DOMPE FARMACEUTICI
  Company Number: US-FARMAPROD-202504-1404

PATIENT
  Sex: Female

DRUGS (17)
  1. OXERVATE [Suspect]
     Active Substance: CENEGERMIN-BKBJ
     Indication: Neurotrophic keratopathy
     Route: 047
     Dates: start: 20250321
  2. PROBIOTIC 10 [BIFIDOBACTERIUM BIFIDUM;BIFIDOBACTERIUM LACTIS;LACTIPLAN [Concomitant]
  3. SERTRALINE HYDROCHLORIDE [Concomitant]
     Active Substance: SERTRALINE HYDROCHLORIDE
  4. PROTONIX [Concomitant]
     Active Substance: PANTOPRAZOLE SODIUM
  5. LEVOTHYROXINE SODIUM [Concomitant]
     Active Substance: LEVOTHYROXINE SODIUM
  6. ATORVASTATIN CALCIUM [Concomitant]
     Active Substance: ATORVASTATIN CALCIUM
  7. FUROSEMIDE TOWA [FUROSEMIDE SODIUM] [Concomitant]
  8. XARELTO [Concomitant]
     Active Substance: RIVAROXABAN
  9. REFRESH DIGITAL [Concomitant]
     Active Substance: CARBOXYMETHYLCELLULOSE SODIUM\GLYCERIN\POLYSORBATE 80
  10. METHAZOLAMIDE [Concomitant]
     Active Substance: METHAZOLAMIDE
  11. BRIMONIDINE TARTRATE;TIMOLOL [Concomitant]
  12. DORZOLAMIDE HYDROCHLORIDE\TIMOLOL MALEATE [Concomitant]
     Active Substance: DORZOLAMIDE HYDROCHLORIDE\TIMOLOL MALEATE
  13. RHOPRESSA [Concomitant]
     Active Substance: NETARSUDIL MESYLATE
  14. LATANOPROST 3M [Concomitant]
  15. VEVYE [Concomitant]
     Active Substance: CYCLOSPORINE
  16. GATIFLOXACIN [Concomitant]
     Active Substance: GATIFLOXACIN
  17. CALCIUM HYDROXIDE [Concomitant]
     Active Substance: CALCIUM HYDROXIDE

REACTIONS (1)
  - Eye pain [Unknown]
